FAERS Safety Report 14877661 (Version 3)
Quarter: 2020Q2

REPORT INFORMATION
  Report Type: Report from Study
  Country: CO (occurrence: CO)
  Receive Date: 20180510
  Receipt Date: 20200608
  Transmission Date: 20200713
  Serious: Yes (Hospitalization, Other)
  Sender: FDA-Public Use
  Company Number: CO-SA-2018SA131231

PATIENT

DRUGS (2)
  1. ALGLUCOSIDASE ALFA [Suspect]
     Active Substance: ALGLUCOSIDASE ALFA
     Indication: GLYCOGEN STORAGE DISEASE TYPE II
     Dosage: 16 DF,QOW
     Route: 041
     Dates: start: 20080109
  2. ALGLUCOSIDASE ALFA [Suspect]
     Active Substance: ALGLUCOSIDASE ALFA
     Dosage: 24 DF, Q15D
     Route: 042
     Dates: start: 20080809

REACTIONS (7)
  - Abdominal pain upper [Recovered/Resolved]
  - Postoperative wound infection [Recovering/Resolving]
  - Seizure [Recovered/Resolved]
  - Nausea [Recovered/Resolved]
  - Eye movement disorder [Recovered/Resolved]
  - Abdominal abscess [Recovering/Resolving]
  - Abdominal pain upper [Recovering/Resolving]

NARRATIVE: CASE EVENT DATE: 20180503
